FAERS Safety Report 19142500 (Version 1)
Quarter: 2021Q2

REPORT INFORMATION
  Report Type: Spontaneous
  Country: US (occurrence: US)
  Receive Date: 20210415
  Receipt Date: 20210415
  Transmission Date: 20210717
  Serious: No
  Sender: FDA-Public Use
  Company Number: US-ORGANON-O2103USA002910

PATIENT
  Age: 70 Year
  Sex: Female

DRUGS (7)
  1. DESONIDE. [Suspect]
     Active Substance: DESONIDE
     Indication: CUTANEOUS COCCIDIOIDOMYCOSIS
     Dosage: UNK
  2. TRIAMCINOLONE [Suspect]
     Active Substance: TRIAMCINOLONE
     Indication: CUTANEOUS COCCIDIOIDOMYCOSIS
     Dosage: UNK
  3. ELOCON [Suspect]
     Active Substance: MOMETASONE FUROATE
     Indication: CUTANEOUS COCCIDIOIDOMYCOSIS
     Dosage: UNK
     Route: 061
  4. METRONIDAZOLE. [Suspect]
     Active Substance: METRONIDAZOLE
     Indication: CUTANEOUS COCCIDIOIDOMYCOSIS
     Dosage: UNK
  5. PIMECROLIMUS. [Suspect]
     Active Substance: PIMECROLIMUS
     Indication: CUTANEOUS COCCIDIOIDOMYCOSIS
     Dosage: UNK
  6. DOXYCYCLINE. [Suspect]
     Active Substance: DOXYCYCLINE
     Indication: CUTANEOUS COCCIDIOIDOMYCOSIS
     Dosage: UNK
     Route: 048
  7. PREDNISONE. [Suspect]
     Active Substance: PREDNISONE
     Indication: CUTANEOUS COCCIDIOIDOMYCOSIS
     Dosage: UNK

REACTIONS (1)
  - Therapeutic product effect incomplete [Unknown]
